FAERS Safety Report 5613301-6 (Version None)
Quarter: 2008Q1

REPORT INFORMATION
  Report Type: 
  Country: None (occurrence: None)
  Receive Date: 20080130
  Receipt Date: 20080121
  Transmission Date: 20080703
  Serious: Yes (Other)
  Sender: FDA-Public Use
  Company Number: GXKR2008PK00975

PATIENT
  Age: 22 Year
  Sex: Female

DRUGS (3)
  1. CYCLOSPORINE [Suspect]
     Indication: PROPHYLAXIS AGAINST GRAFT VERSUS HOST DISEASE
     Dosage: 2.5 MG/KG, BID
     Dates: start: 20050101, end: 20050101
  2. METHYLPREDNISOLONE [Suspect]
     Indication: PROPHYLAXIS AGAINST GRAFT VERSUS HOST DISEASE
     Dates: start: 20050101
  3. MYCOPHENOLATE MOFETILI (MYCOPHENOLATE MOFETIL) [Concomitant]

REACTIONS (8)
  - GRAND MAL CONVULSION [None]
  - HEADACHE [None]
  - HYPERTENSION [None]
  - MUSCLE TWITCHING [None]
  - NEPHROPATHY TOXIC [None]
  - NEUROTOXICITY [None]
  - VISION BLURRED [None]
  - VOMITING [None]
